FAERS Safety Report 8874027 (Version 1)
Quarter: 2012Q4

REPORT INFORMATION
  Report Type: 
  Country: CA (occurrence: US)
  Receive Date: 20121031
  Receipt Date: 20121031
  Transmission Date: 20130627
  Serious: No
  Sender: FDA-Public Use
  Company Number: CA-009507513-2012SP022456

PATIENT
  Age: 3 Year
  Sex: Male
  Weight: 15.42 kg

DRUGS (2)
  1. COPPERTONE WATER BABIES QUICK COVER LOTION SPRAY SPF-50 [Suspect]
     Indication: PROPHYLAXIS AGAINST SOLAR RADIATION
     Dosage: UNK, Unknown
     Route: 061
     Dates: start: 20120311, end: 20120313
  2. VITAMINS (UNSPECIFIED) [Concomitant]
     Indication: PRODUCT USED FOR UNKNOWN INDICATION
     Dosage: UNK UNK, Unknown

REACTIONS (6)
  - Heat stroke [Recovered/Resolved]
  - Sunburn [Recovered/Resolved]
  - Blister [Recovered/Resolved]
  - Insomnia [Recovered/Resolved]
  - Discomfort [Recovered/Resolved]
  - Pain [Recovered/Resolved]
